FAERS Safety Report 14358971 (Version 2)
Quarter: 2018Q1

REPORT INFORMATION
  Report Type: Report from Study
  Country: US (occurrence: US)
  Receive Date: 20180105
  Receipt Date: 20180105
  Transmission Date: 20180509
  Serious: No
  Sender: FDA-Public Use
  Company Number: US-AMGEN-USASL2016085882

PATIENT
  Age: 68 Year
  Sex: Female

DRUGS (1)
  1. REPATHA [Suspect]
     Active Substance: EVOLOCUMAB
     Indication: BLOOD CHOLESTEROL ABNORMAL
     Dosage: 140 MG, Q2WK
     Route: 065
     Dates: start: 2016, end: 20160623

REACTIONS (7)
  - Pruritus [Unknown]
  - Nausea [Unknown]
  - Abdominal distension [Unknown]
  - Back pain [Unknown]
  - Paraesthesia [Unknown]
  - Feeling hot [Unknown]
  - Myalgia [Unknown]
